FAERS Safety Report 15261714 (Version 1)
Quarter: 2018Q3

REPORT INFORMATION
  Report Type: Report from Study
  Country: US (occurrence: US)
  Receive Date: 20180809
  Receipt Date: 20180809
  Transmission Date: 20181010
  Serious: No
  Sender: FDA-Public Use
  Company Number: US-AEGERION PHARMACEUTICAL, INC-AEGR003431

PATIENT
  Age: 63 Year
  Sex: Female
  Weight: 95.24 kg

DRUGS (2)
  1. JUXTAPID [Suspect]
     Active Substance: LOMITAPIDE MESYLATE
     Dosage: 20 MG, QD
     Route: 048
     Dates: start: 20131130, end: 201710
  2. JUXTAPID [Suspect]
     Active Substance: LOMITAPIDE MESYLATE
     Indication: TYPE IIA HYPERLIPIDAEMIA
     Dosage: 5 MG, QD
     Route: 048

REACTIONS (3)
  - Ear disorder [Recovering/Resolving]
  - Hypotension [Unknown]
  - Therapy cessation [Unknown]

NARRATIVE: CASE EVENT DATE: 201710
